FAERS Safety Report 17828464 (Version 1)
Quarter: 2020Q2

REPORT INFORMATION
  Report Type: Spontaneous
  Country: US (occurrence: US)
  Receive Date: 20200527
  Receipt Date: 20200527
  Transmission Date: 20200714
  Serious: No
  Sender: FDA-Public Use
  Company Number: US-PFIZER INC-2018298096

PATIENT
  Age: 67 Year
  Sex: Female

DRUGS (7)
  1. ALBUTEROL SULFATE HFA [Concomitant]
     Active Substance: ALBUTEROL SULFATE
     Dosage: UNK
  2. VITAMIN D3 [Concomitant]
     Active Substance: CHOLECALCIFEROL
     Dosage: UNK (10(400)/ML DROPS)
  3. HYDROCODONE-ACETAMINOPHEN [Concomitant]
     Active Substance: ACETAMINOPHEN\HYDROCODONE
     Dosage: UNK
  4. SELENOMETHIONINE. [Concomitant]
     Active Substance: SELENOMETHIONINE
     Dosage: 0.5 %
  5. XELJANZ [Suspect]
     Active Substance: TOFACITINIB CITRATE
     Indication: POLYNEUROPATHY
     Dosage: 5 MG, 2X/DAY
     Dates: start: 20160913, end: 20180614
  6. XELJANZ [Suspect]
     Active Substance: TOFACITINIB CITRATE
     Indication: RHEUMATOID FACTOR
     Dosage: 5 MG, 2X/DAY
     Route: 048
     Dates: start: 2018
  7. XELJANZ [Suspect]
     Active Substance: TOFACITINIB CITRATE
     Indication: RHEUMATOID ARTHRITIS
     Dosage: 5 MG, 2X/DAY

REACTIONS (2)
  - Dyspepsia [Unknown]
  - Headache [Unknown]
